FAERS Safety Report 10837688 (Version 1)
Quarter: 2015Q1

REPORT INFORMATION
  Report Type: Spontaneous
  Country: US (occurrence: US)
  Receive Date: 20150219
  Receipt Date: 20150219
  Transmission Date: 20150721
  Serious: No
  Sender: FDA-Public Use
  Company Number: US-GLAXOSMITHKLINE-US2014GSK051974

PATIENT
  Sex: Female

DRUGS (3)
  1. WELLBUTRIN XL [Suspect]
     Active Substance: BUPROPION HYDROCHLORIDE
     Indication: PRODUCT USED FOR UNKNOWN INDICATION
     Dosage: UNK
     Route: 048
  2. ATENOLOL. [Concomitant]
     Active Substance: ATENOLOL
  3. SIMVASTATIN. [Concomitant]
     Active Substance: SIMVASTATIN

REACTIONS (1)
  - Drug ineffective [Unknown]
